FAERS Safety Report 7633372-5 (Version None)
Quarter: 2011Q3

REPORT INFORMATION
  Report Type: 
  Country: None (occurrence: None)
  Receive Date: 20110725
  Receipt Date: 20101104
  Transmission Date: 20111222
  Serious: Yes (Disabling)
  Sender: FDA-Public Use
  Company Number: US-BRISTOL-MYERS SQUIBB COMPANY-15364524

PATIENT
  Age: 63 Year
  Sex: Male

DRUGS (17)
  1. ALIGN [Concomitant]
  2. NEXIUM [Concomitant]
  3. ASPIRIN [Concomitant]
  4. METFORMIN HCL [Concomitant]
  5. PROVENTIL [Concomitant]
  6. SIMVASTATIN [Concomitant]
  7. CARVEDILOL [Concomitant]
  8. FLOMAX [Concomitant]
  9. SPIRIVA [Concomitant]
  10. SYMBICORT [Concomitant]
  11. SYNTHROID [Concomitant]
  12. FUROSEMIDE [Concomitant]
  13. ACTOS [Concomitant]
  14. ESCITALOPRAM [Concomitant]
  15. FOLIC ACID [Concomitant]
  16. DARVOCET-N 50 [Concomitant]
  17. SPRYCEL [Suspect]
     Indication: CHRONIC MYELOID LEUKAEMIA
     Route: 048
     Dates: start: 20061117, end: 20101029

REACTIONS (1)
  - PLEURAL EFFUSION [None]
